FAERS Safety Report 18867217 (Version 1)
Quarter: 2021Q1

REPORT INFORMATION
  Report Type: Spontaneous
  Country: DE (occurrence: DE)
  Receive Date: 20210209
  Receipt Date: 20210209
  Transmission Date: 20210420
  Serious: Yes (Other)
  Sender: FDA-Public Use
  Company Number: DE-009507513-2102DEU001002

PATIENT
  Sex: Female

DRUGS (1)
  1. DIPROGENTA [Suspect]
     Active Substance: BETAMETHASONE DIPROPIONATE\GENTAMICIN SULFATE
     Indication: AURICULAR SWELLING
     Dosage: UNK
     Dates: start: 20210129, end: 20210130

REACTIONS (8)
  - Feeling hot [Unknown]
  - Application site erythema [Unknown]
  - Pain [Unknown]
  - Obstructive airways disorder [Unknown]
  - Dental fistula [Unknown]
  - Drug intolerance [Unknown]
  - Swelling [Unknown]
  - Erythema [Unknown]

NARRATIVE: CASE EVENT DATE: 2021
